FAERS Safety Report 16956346 (Version 1)
Quarter: 2019Q4

REPORT INFORMATION
  Report Type: Spontaneous
  Country: US (occurrence: US)
  Receive Date: 20191024
  Receipt Date: 20191024
  Transmission Date: 20200122
  Serious: No
  Sender: FDA-Public Use
  Company Number: US-PFIZER INC-2019357613

PATIENT
  Age: 9 Year
  Sex: Female

DRUGS (1)
  1. GENOTROPIN [Suspect]
     Active Substance: SOMATROPIN
     Indication: HYPOPITUITARISM
     Dosage: 0.8 MG, 1X/DAY
     Dates: start: 20190701

REACTIONS (5)
  - Wrong technique in device usage process [Unknown]
  - Dizziness [Unknown]
  - Nasopharyngitis [Unknown]
  - Gait disturbance [Unknown]
  - Product dose omission [Unknown]

NARRATIVE: CASE EVENT DATE: 201908
